FAERS Safety Report 16863210 (Version 2)
Quarter: 2019Q4

REPORT INFORMATION
  Report Type: Report from Study
  Country: DE (occurrence: DE)
  Receive Date: 20190927
  Receipt Date: 20191018
  Transmission Date: 20200122
  Serious: Yes (Hospitalization)
  Sender: FDA-Public Use
  Company Number: DE-SA-2019SA265122

PATIENT
  Age: 74 Year
  Sex: Male
  Weight: 74.5 kg

DRUGS (15)
  1. OXALIPLATIN. [Suspect]
     Active Substance: OXALIPLATIN
     Dosage: 158 MG, QCY
     Route: 042
     Dates: start: 20190903, end: 20190903
  2. DEXAMETHASONE. [Concomitant]
     Active Substance: DEXAMETHASONE
     Indication: CHEMOTHERAPY
     Dosage: 8 MG, QD
     Dates: start: 20190918, end: 20190919
  3. BISOPROLOL [Concomitant]
     Active Substance: BISOPROLOL
     Indication: ILL-DEFINED DISORDER
     Dosage: 2.5 MG, 1X
  4. 5-FU [Suspect]
     Active Substance: FLUOROURACIL
     Dosage: 5200 MG, QCY
     Route: 042
     Dates: start: 20190903, end: 20190903
  5. LEUCOVORIN [FOLINIC ACID] [Suspect]
     Active Substance: LEUCOVORIN
     Indication: COLORECTAL CANCER METASTATIC
     Dosage: 650 MG, QCY
     Route: 042
     Dates: start: 20190917, end: 20190917
  6. RANITIDIN [Concomitant]
     Active Substance: RANITIDINE HYDROCHLORIDE
     Indication: CHEMOTHERAPY
     Dosage: 50 MG, 1X
     Dates: start: 20190917, end: 20190917
  7. DIMETINDENE MALEATE [Concomitant]
     Active Substance: DIMETHINDENE MALEATE
     Indication: CHEMOTHERAPY
     Dosage: 4 MG, TOTAL
     Dates: start: 20190917, end: 20190917
  8. TAVEGIL [CLEMASTINE] [Concomitant]
     Active Substance: CLEMASTINE
     Indication: ADVERSE EVENT
     Dosage: 2 MG, 1X
     Dates: start: 20190917, end: 20190917
  9. AFLIBERCEPT [Suspect]
     Active Substance: AFLIBERCEPT
     Dosage: 298 MG, QCY
     Route: 042
     Dates: start: 20190903, end: 20190903
  10. 5-FU [Suspect]
     Active Substance: FLUOROURACIL
     Indication: COLORECTAL CANCER METASTATIC
     Dosage: 5200 MG, QCY
     Route: 042
     Dates: start: 20190920, end: 20190920
  11. LEUCOVORIN [FOLINIC ACID] [Suspect]
     Active Substance: LEUCOVORIN
     Dosage: 650 MG, QCY
     Route: 042
     Dates: start: 20190903, end: 20190903
  12. AFLIBERCEPT [Suspect]
     Active Substance: AFLIBERCEPT
     Indication: COLORECTAL CANCER METASTATIC
     Dosage: 298 MG, QCY
     Route: 042
     Dates: start: 20190917, end: 20190917
  13. ONDANSETRON [Concomitant]
     Active Substance: ONDANSETRON
     Indication: CHEMOTHERAPY
     Dosage: 8 MG, UNK
     Dates: start: 20190917, end: 20190917
  14. OXALIPLATIN. [Suspect]
     Active Substance: OXALIPLATIN
     Indication: COLORECTAL CANCER METASTATIC
     Dosage: 158 MG, QCY
     Route: 042
     Dates: start: 20190917, end: 20190917
  15. DEXAMETHASONE. [Concomitant]
     Active Substance: DEXAMETHASONE
     Dosage: 20 MG, UNK
     Dates: start: 20190917, end: 20190917

REACTIONS (1)
  - Cardiac failure chronic [Recovered/Resolved]

NARRATIVE: CASE EVENT DATE: 20190919
